FAERS Safety Report 9731374 (Version 1)
Quarter: 2013Q4

REPORT INFORMATION
  Report Type: Spontaneous
  Country: US (occurrence: US)
  Receive Date: 20131203
  Receipt Date: 20131203
  Transmission Date: 20140711
  Serious: No
  Sender: FDA-Public Use
  Company Number: US-NOVEN-13US007854

PATIENT
  Age: 65 Year
  Sex: Male

DRUGS (6)
  1. FENTANYL [Suspect]
     Indication: WOUND COMPLICATION
     Dosage: 75 UG/HR Q 72 HRS
     Route: 062
     Dates: start: 20130827, end: 201309
  2. FENTANYL [Suspect]
     Dosage: 100 UG/HR Q 72 HRS
     Route: 062
     Dates: start: 201309, end: 201309
  3. JANUMET [Concomitant]
     Indication: PRODUCT USED FOR UNKNOWN INDICATION
     Dosage: UNK
  4. LOSARTAN [Concomitant]
     Indication: PRODUCT USED FOR UNKNOWN INDICATION
     Dosage: UNK
  5. CIALIS [Concomitant]
     Indication: PRODUCT USED FOR UNKNOWN INDICATION
     Dosage: UNK
  6. LOVENOX [Concomitant]
     Indication: PRODUCT USED FOR UNKNOWN INDICATION
     Dosage: UNK

REACTIONS (6)
  - Drug withdrawal syndrome [Recovered/Resolved]
  - Asthenia [Recovered/Resolved]
  - Nausea [Recovered/Resolved]
  - Dizziness [Recovered/Resolved]
  - Inadequate analgesia [Recovered/Resolved]
  - Product quality issue [Recovered/Resolved]
